FAERS Safety Report 21082030 (Version 1)
Quarter: 2022Q3

REPORT INFORMATION
  Report Type: Spontaneous
  Country: US (occurrence: None)
  Receive Date: 20220714
  Receipt Date: 20220714
  Transmission Date: 20221027
  Serious: No
  Sender: FDA-Public Use
  Company Number: None

PATIENT
  Age: 48 Year
  Sex: Male

DRUGS (1)
  1. HUMIRA [Suspect]
     Active Substance: ADALIMUMAB
     Indication: Psoriasis
     Dosage: OTHER FREQUENCY : OTHER;?
     Route: 058
     Dates: start: 202111

REACTIONS (9)
  - Joint swelling [None]
  - Peripheral swelling [None]
  - Joint swelling [None]
  - Peripheral swelling [None]
  - Feeling hot [None]
  - Erythema [None]
  - Vision blurred [None]
  - Skin fissures [None]
  - Chapped lips [None]

NARRATIVE: CASE EVENT DATE: 20220714
